FAERS Safety Report 18153666 (Version 10)
Quarter: 2024Q2

REPORT INFORMATION
  Report Type: Report from Study
  Country: CA (occurrence: CA)
  Receive Date: 20200816
  Receipt Date: 20240620
  Transmission Date: 20240716
  Serious: Yes (Death, Hospitalization, Other)
  Sender: FDA-Public Use
  Company Number: PHHY2016CA125843

PATIENT
  Age: 35 Year
  Sex: Male

DRUGS (44)
  1. COSENTYX [Suspect]
     Active Substance: SECUKINUMAB
     Indication: Ankylosing spondylitis
     Dosage: 150 MG, QW
     Route: 058
     Dates: start: 20160907, end: 20160928
  2. COSENTYX [Suspect]
     Active Substance: SECUKINUMAB
     Dosage: 150 MG, QMO
     Route: 058
     Dates: start: 20161005
  3. COSENTYX [Suspect]
     Active Substance: SECUKINUMAB
     Dosage: 150 MG, QMO
     Route: 058
     Dates: start: 20170205
  4. COSENTYX [Suspect]
     Active Substance: SECUKINUMAB
     Dosage: 150 MG, QMO
     Route: 058
     Dates: start: 2017
  5. COSENTYX [Suspect]
     Active Substance: SECUKINUMAB
     Dosage: 300 MG, QMO
     Route: 058
     Dates: end: 202302
  6. COSENTYX [Suspect]
     Active Substance: SECUKINUMAB
     Dosage: 150 MG
     Route: 058
  7. COSENTYX [Suspect]
     Active Substance: SECUKINUMAB
     Dosage: 150 MG, QMO
     Route: 058
     Dates: start: 20170205
  8. METHOTREXATE [Suspect]
     Active Substance: METHOTREXATE
     Indication: Product used for unknown indication
     Dosage: 150 MG, QMO
     Route: 058
     Dates: start: 20161005
  9. LEFLUNOMIDE [Suspect]
     Active Substance: LEFLUNOMIDE
     Indication: Product used for unknown indication
     Dosage: 150 MG, QMO
     Route: 058
     Dates: start: 20170205
  10. LEFLUNOMIDE [Suspect]
     Active Substance: LEFLUNOMIDE
     Dosage: 150 MG, QMO
     Route: 058
  11. LEFLUNOMIDE [Suspect]
     Active Substance: LEFLUNOMIDE
     Dosage: UNK
     Route: 065
  12. INDOMETHACIN [Suspect]
     Active Substance: INDOMETHACIN
     Indication: Product used for unknown indication
     Dosage: 150 MG, QMO
     Route: 058
     Dates: start: 2017
  13. INDOMETHACIN [Suspect]
     Active Substance: INDOMETHACIN
     Dosage: 150 MG, QMO
     Route: 058
  14. INDOMETHACIN [Suspect]
     Active Substance: INDOMETHACIN
     Dosage: UNK
     Route: 065
  15. INDOMETHACIN [Suspect]
     Active Substance: INDOMETHACIN
     Dosage: 150 MG, QMO
     Route: 058
  16. EFFEXOR [Concomitant]
     Active Substance: VENLAFAXINE HYDROCHLORIDE
     Indication: Product used for unknown indication
     Dosage: 37.5 MG, QD
     Route: 065
  17. EFFEXOR [Concomitant]
     Active Substance: VENLAFAXINE HYDROCHLORIDE
     Dosage: 300 MG, QMO
     Route: 065
     Dates: start: 202302
  18. EFFEXOR [Concomitant]
     Active Substance: VENLAFAXINE HYDROCHLORIDE
     Dosage: 300 MG, QMO
     Route: 058
  19. SEROQUEL [Concomitant]
     Active Substance: QUETIAPINE FUMARATE
     Indication: Product used for unknown indication
     Dosage: 12.5 MG, QD
     Route: 065
  20. SEROQUEL [Concomitant]
     Active Substance: QUETIAPINE FUMARATE
     Dosage: UNK
     Route: 065
  21. ENBREL [Concomitant]
     Active Substance: BENZYL ALCOHOL\ETANERCEPT
     Indication: Product used for unknown indication
     Dosage: UNK, UNKNOWN
     Route: 065
  22. HUMIRA [Concomitant]
     Active Substance: ADALIMUMAB
     Indication: Product used for unknown indication
     Dosage: 20 MG
     Route: 058
  23. HUMIRA [Concomitant]
     Active Substance: ADALIMUMAB
     Dosage: UNK
     Route: 058
  24. HUMIRA [Concomitant]
     Active Substance: ADALIMUMAB
     Dosage: UNK
     Route: 058
  25. PREDNISONE [Concomitant]
     Active Substance: PREDNISONE
     Indication: Product used for unknown indication
     Dosage: 37.5 MG, QD
     Route: 065
  26. PREDNISONE [Concomitant]
     Active Substance: PREDNISONE
     Dosage: UNK
     Route: 065
  27. SULFASALAZINE [Concomitant]
     Active Substance: SULFASALAZINE
     Indication: Product used for unknown indication
     Dosage: 12.5 MG, QD
     Route: 065
  28. SULFASALAZINE [Concomitant]
     Active Substance: SULFASALAZINE
     Dosage: UNK
     Route: 065
  29. SULFASALAZINE [Concomitant]
     Active Substance: SULFASALAZINE
     Dosage: UNK
     Route: 065
  30. IBUPROFEN [Concomitant]
     Active Substance: IBUPROFEN
     Indication: Product used for unknown indication
     Dosage: UNK, (STRENGTH: 400 MG)
     Route: 065
  31. IBUPROFEN [Concomitant]
     Active Substance: IBUPROFEN
     Dosage: UNK
     Route: 065
  32. NAPROXEN [Concomitant]
     Active Substance: NAPROXEN
     Indication: Product used for unknown indication
     Dosage: UNK, UNKNOWN
     Route: 065
  33. NAPROXEN [Concomitant]
     Active Substance: NAPROXEN
     Dosage: UNK
     Route: 065
  34. CELEBREX [Concomitant]
     Active Substance: CELECOXIB
     Indication: Product used for unknown indication
     Dosage: UNK, UNKNOWN
     Route: 065
  35. CELEBREX [Concomitant]
     Active Substance: CELECOXIB
     Dosage: UNK
     Route: 065
  36. DULOXETINE [Concomitant]
     Active Substance: DULOXETINE
     Indication: Product used for unknown indication
     Dosage: 30 MG
     Route: 065
  37. LYRICA [Concomitant]
     Active Substance: PREGABALIN
     Indication: Product used for unknown indication
     Dosage: 1 DOSAGE FORM, BID
     Route: 048
  38. LYRICA [Concomitant]
     Active Substance: PREGABALIN
     Dosage: 2 DF, QD
     Route: 048
  39. QUETIAPINE FUMARATE [Concomitant]
     Active Substance: QUETIAPINE FUMARATE
     Indication: Product used for unknown indication
     Dosage: UNK
     Route: 065
  40. QUETIAPINE FUMARATE [Concomitant]
     Active Substance: QUETIAPINE FUMARATE
     Dosage: UNK
     Route: 065
  41. QUETIAPINE FUMARATE [Concomitant]
     Active Substance: QUETIAPINE FUMARATE
     Dosage: UNK
     Route: 065
  42. QUETIAPINE FUMARATE [Concomitant]
     Active Substance: QUETIAPINE FUMARATE
     Dosage: 12.5 MG, QD
     Route: 065
  43. VENLAFAXINE HYDROCHLORIDE [Concomitant]
     Active Substance: VENLAFAXINE HYDROCHLORIDE
     Indication: Product used for unknown indication
     Dosage: 300 MG, QMO
     Route: 065
  44. VENLAFAXINE HYDROCHLORIDE [Concomitant]
     Active Substance: VENLAFAXINE HYDROCHLORIDE
     Dosage: 37.5 MG, QD
     Route: 065

REACTIONS (10)
  - Death [Fatal]
  - Seizure [Unknown]
  - Ankylosing spondylitis [Not Recovered/Not Resolved]
  - Colitis ulcerative [Unknown]
  - Nasopharyngitis [Recovering/Resolving]
  - Arthralgia [Unknown]
  - Chronic idiopathic pain syndrome [Unknown]
  - Cough [Not Recovered/Not Resolved]
  - Influenza [Recovering/Resolving]
  - Fibromyalgia [Unknown]

NARRATIVE: CASE EVENT DATE: 20221027
